FAERS Safety Report 20617046 (Version 3)
Quarter: 2022Q3

REPORT INFORMATION
  Report Type: Report from Study
  Country: CH (occurrence: CH)
  Receive Date: 20220321
  Receipt Date: 20220812
  Transmission Date: 20221026
  Serious: Yes (Death, Hospitalization)
  Sender: FDA-Public Use
  Company Number: CH-ABBVIE-22K-151-4321215-00

PATIENT
  Age: 80 Year
  Sex: Male

DRUGS (2)
  1. CARBIDOPA\LEVODOPA [Suspect]
     Active Substance: CARBIDOPA\LEVODOPA
     Indication: Parkinson^s disease
     Dosage: MD: 3 ML, CRD: 2 ML/H, ED: 1.0 ML / 1 CASSETTE PER DAY?16H THERAPY?20 MG/ML 5 MG/ML
     Route: 050
     Dates: start: 20210308, end: 20210318
  2. CARBIDOPA\LEVODOPA [Suspect]
     Active Substance: CARBIDOPA\LEVODOPA
     Dosage: MD: 6 ML, CRD: 2.1 ML/H, ED: 1.0 ML?16H THERAPY?20 MG/ML 5 MG/ML
     Route: 050
     Dates: start: 20210318, end: 202206

REACTIONS (3)
  - Cardiac disorder [Fatal]
  - General physical health deterioration [Unknown]
  - COVID-19 [Unknown]

NARRATIVE: CASE EVENT DATE: 20220317
